FAERS Safety Report 5752228-6 (Version None)
Quarter: 2008Q2

REPORT INFORMATION
  Report Type: 
  Country: None (occurrence: None)
  Receive Date: 20080529
  Receipt Date: 20080519
  Transmission Date: 20081010
  Serious: Yes (Other)
  Sender: FDA-Public Use
  Company Number: US-JNJFOC-20080504027

PATIENT
  Sex: Female

DRUGS (9)
  1. TYLOX [Suspect]
     Indication: CHEST PAIN
     Route: 048
  2. ACTOS [Suspect]
     Dosage: 2X 15 MG
     Route: 048
  3. ACTOS [Suspect]
     Indication: TYPE 2 DIABETES MELLITUS
     Route: 048
  4. DUETACT [Concomitant]
     Indication: TYPE 2 DIABETES MELLITUS
     Dosage: 2 MG/ 30 MG
     Route: 048
  5. ALLEGRA D [Concomitant]
     Indication: SINUS DISORDER
     Dosage: 60 MG/ 120 MG
     Route: 048
  6. ALBUTEROL [Concomitant]
     Indication: PULMONARY CONGESTION
     Route: 055
  7. ZOPINEX [Concomitant]
     Indication: PULMONARY CONGESTION
     Route: 055
  8. VANTIN [Concomitant]
     Indication: PNEUMOCOCCAL INFECTION
     Route: 048
  9. PROMETHAZINE CODEINE [Concomitant]
     Indication: COUGH
     Route: 048

REACTIONS (8)
  - APHONIA [None]
  - CHEST PAIN [None]
  - INSOMNIA [None]
  - LOSS OF CONSCIOUSNESS [None]
  - MALAISE [None]
  - PHARYNGOLARYNGEAL PAIN [None]
  - PNEUMOCOCCAL INFECTION [None]
  - SLUGGISHNESS [None]
